FAERS Safety Report 7301757-2 (Version None)
Quarter: 2011Q1

REPORT INFORMATION
  Report Type: 
  Country: None (occurrence: None)
  Receive Date: 20110218
  Receipt Date: 20110215
  Transmission Date: 20110831
  Serious: Yes (Life-Threatening, Disabling)
  Sender: FDA-Public Use
  Company Number: A0897983A

PATIENT
  Age: 66 Year
  Sex: Male

DRUGS (8)
  1. HUMULIN R [Concomitant]
  2. AMLODIPINE [Concomitant]
  3. ALTACE [Concomitant]
  4. TRICOR [Concomitant]
  5. WARFARIN [Concomitant]
  6. LIPITOR [Concomitant]
  7. DIGOXIN [Concomitant]
  8. CARVEDILOL [Suspect]
     Dosage: 25MG TWICE PER DAY
     Route: 048
     Dates: start: 20030101, end: 20090101

REACTIONS (9)
  - CHEST PAIN [None]
  - PALPITATIONS [None]
  - OEDEMA [None]
  - VERTIGO [None]
  - OEDEMA PERIPHERAL [None]
  - ANGINA PECTORIS [None]
  - EPISTAXIS [None]
  - HEADACHE [None]
  - PAIN [None]
